FAERS Safety Report 7464402-1 (Version None)
Quarter: 2011Q2

REPORT INFORMATION
  Report Type: 
  Country: None (occurrence: None)
  Receive Date: 20110509
  Receipt Date: 20110504
  Transmission Date: 20111010
  Serious: Yes (Other)
  Sender: FDA-Public Use
  Company Number: US-PFIZER INC-2011096174

PATIENT
  Age: 32 Year
  Sex: Male
  Weight: 90.7 kg

DRUGS (7)
  1. ABILIFY [Suspect]
     Dosage: UNK
  2. LATUDA [Suspect]
     Indication: BIPOLAR DISORDER
     Dosage: 40 MG, 1X/DAY
     Route: 048
     Dates: start: 20110314, end: 20110318
  3. WELLBUTRIN [Concomitant]
  4. INVEGA [Suspect]
     Dosage: UNK
  5. CYMBALTA [Concomitant]
     Dosage: UNK
  6. GEODON [Suspect]
     Dosage: UNK
  7. RISPERDAL [Suspect]
     Dosage: UNK

REACTIONS (4)
  - DEPRESSION [None]
  - DIZZINESS [None]
  - FEELING ABNORMAL [None]
  - ASTHENIA [None]
